FAERS Safety Report 8889455 (Version 1)
Quarter: 2012Q4

REPORT INFORMATION
  Report Type: Spontaneous
  Country: US (occurrence: None)
  Receive Date: 20121102
  Receipt Date: 20121102
  Transmission Date: 20130627
  Serious: No
  Sender: FDA-Public Use
  Company Number: None

PATIENT
  Age: 57 Year
  Sex: Female
  Weight: 67.3 kg

DRUGS (2)
  1. IOPAMIDOL [Suspect]
     Indication: RENAL MASS
     Dates: start: 20121030, end: 20121030
  2. IOPAMIDOL [Suspect]
     Indication: CT SCAN
     Dates: start: 20121030, end: 20121030

REACTIONS (3)
  - Dysphonia [None]
  - Throat tightness [None]
  - Paraesthesia oral [None]
